FAERS Safety Report 15293842 (Version 3)
Quarter: 2018Q3

REPORT INFORMATION
  Report Type: Spontaneous
  Country: US (occurrence: US)
  Receive Date: 20180820
  Receipt Date: 20180927
  Transmission Date: 20181010
  Serious: Yes (Hospitalization, Other)
  Sender: FDA-Public Use
  Company Number: US-HORIZON-PRO-0162-2018

PATIENT
  Age: 15 Year
  Sex: Male

DRUGS (1)
  1. PROCYSBI [Suspect]
     Active Substance: CYSTEAMINE BITARTRATE
     Indication: AMINO ACID METABOLISM DISORDER
     Dosage: 525 MG (SEVEN 75 MG CAPSULES) EVERY 12 HOURS
     Route: 048

REACTIONS (3)
  - Hypertension [Recovered/Resolved]
  - Swelling [Unknown]
  - Renal transplant [Unknown]

NARRATIVE: CASE EVENT DATE: 201808
